FAERS Safety Report 10428096 (Version 1)
Quarter: 2014Q3

REPORT INFORMATION
  Report Type: Spontaneous
  Country: US (occurrence: US)
  Receive Date: 20140903
  Receipt Date: 20140903
  Transmission Date: 20150326
  Serious: Yes (Hospitalization, Other)
  Sender: FDA-Public Use
  Company Number: US-TEVA-505732USA

PATIENT
  Sex: Male
  Weight: 113.5 kg

DRUGS (2)
  1. PROVIGIL [Suspect]
     Active Substance: MODAFINIL
     Indication: SOMNOLENCE
     Route: 065
  2. NUVIGIL [Suspect]
     Active Substance: ARMODAFINIL
     Indication: SOMNOLENCE
     Route: 065

REACTIONS (5)
  - Therapeutic response changed [Unknown]
  - Carotid artery disease [Unknown]
  - Cerebrovascular accident [Unknown]
  - Drug tolerance [Unknown]
  - Weight decreased [Unknown]
